FAERS Safety Report 5474500-X (Version None)
Quarter: 2007Q3

REPORT INFORMATION
  Report Type: 
  Country: None (occurrence: None)
  Receive Date: 20070928
  Receipt Date: 20070928
  Transmission Date: 20080115
  Serious: Yes (Hospitalization)
  Sender: FDA-Public Use
  Company Number: None

PATIENT
  Sex: Male
  Weight: 76.3 kg

DRUGS (2)
  1. G-CSF (FILGRASTIM, AMGEN) [Suspect]
     Dosage: 5280 MG
     Dates: end: 20041005
  2. CYTARABINE [Suspect]

REACTIONS (2)
  - ESCHERICHIA BACTERAEMIA [None]
  - ESCHERICHIA SEPSIS [None]
